FAERS Safety Report 19719965 (Version 1)
Quarter: 2021Q3

REPORT INFORMATION
  Report Type: Spontaneous
  Country: US (occurrence: US)
  Receive Date: 20210819
  Receipt Date: 20210819
  Transmission Date: 20211014
  Serious: No
  Sender: FDA-Public Use
  Company Number: None

PATIENT
  Age: 70 Year
  Sex: Male

DRUGS (1)
  1. IBRUTINIB (IBRUTINIB 140MG CAP, ORAL) [Suspect]
     Active Substance: IBRUTINIB
     Route: 048
     Dates: start: 20190610

REACTIONS (3)
  - Atrial fibrillation [None]
  - Palpitations [None]
  - Therapy interrupted [None]
